FAERS Safety Report 24331177 (Version 1)
Quarter: 2024Q3

REPORT INFORMATION
  Report Type: Spontaneous
  Country: US (occurrence: US)
  Receive Date: 20240918
  Receipt Date: 20240918
  Transmission Date: 20241016
  Serious: No
  Sender: ACCORD
  Company Number: US-Accord-378554

PATIENT
  Age: 72 Year
  Sex: Male

DRUGS (18)
  1. LISINOPRIL [Suspect]
     Active Substance: LISINOPRIL
     Indication: Product used for unknown indication
  2. RELUGOLIX [Suspect]
     Active Substance: RELUGOLIX
     Indication: Prostate cancer
     Dosage: STRENGTH: 120 MG, ONE TIME DOSE
     Route: 048
  3. ZYTIGA [Concomitant]
     Active Substance: ABIRATERONE ACETATE
  4. ASPIRIN [Concomitant]
     Active Substance: ASPIRIN
  5. ATORVASTATIN [Concomitant]
     Active Substance: ATORVASTATIN
  6. CLOTRIMAZOLE [Concomitant]
     Active Substance: CLOTRIMAZOLE
  7. VITAMIN E [Concomitant]
     Active Substance: .ALPHA.-TOCOPHEROL
  8. FENOFIBRATE [Concomitant]
     Active Substance: FENOFIBRATE
  9. VITAMIN B12 [Concomitant]
     Active Substance: CYANOCOBALAMIN
  10. METFORMIN [Concomitant]
     Active Substance: METFORMIN HYDROCHLORIDE
  11. PREDNISONE [Concomitant]
     Active Substance: PREDNISONE
  12. VITAMIN D3 [Concomitant]
     Active Substance: CHOLECALCIFEROL
  13. DULAGLUTIDE [Concomitant]
     Active Substance: DULAGLUTIDE
  14. ZETIA [Concomitant]
     Active Substance: EZETIMIBE
  15. ABIRATERONE [Concomitant]
     Active Substance: ABIRATERONE
  16. CLONIDINE [Concomitant]
     Active Substance: CLONIDINE
  17. LOSARTAN [Concomitant]
     Active Substance: LOSARTAN\LOSARTAN POTASSIUM
  18. RELUGOLIX [Suspect]
     Active Substance: RELUGOLIX
     Indication: Prostate cancer
     Dosage: STRENGTH: 120 MG, QD
     Route: 048

REACTIONS (3)
  - Blood pressure increased [Not Recovered/Not Resolved]
  - Blood glucose increased [Unknown]
  - Dyspnoea [Unknown]
